FAERS Safety Report 21469664 (Version 1)
Quarter: 2022Q4

REPORT INFORMATION
  Report Type: Spontaneous
  Country: US (occurrence: US)
  Receive Date: 20221018
  Receipt Date: 20221018
  Transmission Date: 20230112
  Serious: No
  Sender: FDA-Public Use
  Company Number: US-ADAMAS PHARMA, LLC-2021ADA02193

PATIENT
  Sex: Female
  Weight: 45.351 kg

DRUGS (16)
  1. GOCOVRI [Suspect]
     Active Substance: AMANTADINE
     Indication: Parkinson^s disease
     Dosage: 68.5 MG, 1X/DAY, AT BEDTIME
     Route: 048
     Dates: start: 20210730, end: 202108
  2. GOCOVRI [Suspect]
     Active Substance: AMANTADINE
     Indication: On and off phenomenon
  3. RYTARY [Concomitant]
     Active Substance: CARBIDOPA\LEVODOPA
  4. CARBIDOPA/LEVODOPA CR [Concomitant]
  5. PANTOPRAZOLE [Concomitant]
     Active Substance: PANTOPRAZOLE
  6. ASPIRIN LOW DOSE EC [Concomitant]
  7. CALCIUM [Concomitant]
     Active Substance: CALCIUM
  8. FLAXSEED OIL (NATROL) [Concomitant]
  9. MAGNESIUM [Concomitant]
     Active Substance: MAGNESIUM
  10. WOMEN^S 50+ MULTIVITAMIN [Concomitant]
  11. VITAMIN C [Concomitant]
     Active Substance: ASCORBIC ACID
  12. VITAMIN D3 [Concomitant]
     Active Substance: CHOLECALCIFEROL
  13. MELATONIN [Concomitant]
     Active Substance: MELATONIN
  14. VITAMIN B12 [Concomitant]
     Active Substance: CYANOCOBALAMIN
     Dosage: EVERY 4 WEEKS
  15. MIRALAX [Concomitant]
     Active Substance: POLYETHYLENE GLYCOL 3350
  16. DOCUSATE SODIUM [Concomitant]
     Active Substance: DOCUSATE SODIUM

REACTIONS (9)
  - Dyspnoea [Recovering/Resolving]
  - Feeling jittery [Recovered/Resolved]
  - Weight decreased [Recovered/Resolved]
  - Parkinson^s disease [Unknown]
  - Insomnia [Not Recovered/Not Resolved]
  - Anxiety [Not Recovered/Not Resolved]
  - Dry mouth [Not Recovered/Not Resolved]
  - Dizziness [Not Recovered/Not Resolved]
  - Hallucination [Recovered/Resolved]

NARRATIVE: CASE EVENT DATE: 20210101
